FAERS Safety Report 7985834-9 (Version None)
Quarter: 2011Q4

REPORT INFORMATION
  Report Type: 
  Country: None (occurrence: None)
  Receive Date: 20111214
  Receipt Date: 20111209
  Transmission Date: 20120403
  Serious: Yes (Hospitalization, Other)
  Sender: FDA-Public Use
  Company Number: 2010SP056526

PATIENT
  Age: 28 Year
  Sex: Female
  Weight: 54.4316 kg

DRUGS (3)
  1. NUVARING [Suspect]
     Indication: CONTRACEPTION
     Dosage: 1 DF;QM;VAG
     Route: 067
     Dates: start: 20061101, end: 20081101
  2. NUVARING [Suspect]
     Indication: CONTRACEPTION
     Dosage: 1 DF;QM;VAG
     Route: 067
     Dates: start: 20081201
  3. ASPIRIN [Concomitant]

REACTIONS (7)
  - BACTERIAL TEST [None]
  - PNEUMONIA [None]
  - HAEMOGLOBIN DECREASED [None]
  - PAIN [None]
  - PULMONARY EMBOLISM [None]
  - HYPERCOAGULATION [None]
  - DEEP VEIN THROMBOSIS [None]
